FAERS Safety Report 5862823-1 (Version None)
Quarter: 2008Q3

REPORT INFORMATION
  Report Type: 
  Country: None (occurrence: None)
  Receive Date: 20080828
  Receipt Date: 20080822
  Transmission Date: 20090109
  Serious: Yes (Hospitalization)
  Sender: FDA-Public Use
  Company Number: A0693028A

PATIENT
  Age: 51 Year
  Sex: Male
  Weight: 109.1 kg

DRUGS (3)
  1. AVANDIA [Suspect]
     Dosage: 4MG PER DAY
     Route: 048
     Dates: start: 20050501, end: 20061001
  2. METFORMIN HCL [Concomitant]
     Dates: start: 20050501
  3. ASPIRIN [Concomitant]
     Indication: PROPHYLAXIS

REACTIONS (3)
  - INJURY [None]
  - MYOCARDIAL INFARCTION [None]
  - PAIN [None]
